FAERS Safety Report 7783368-8 (Version None)
Quarter: 2011Q3

REPORT INFORMATION
  Report Type: 
  Country: None (occurrence: None)
  Receive Date: 20110928
  Receipt Date: 20110926
  Transmission Date: 20111222
  Serious: Yes (Death, Hospitalization)
  Sender: FDA-Public Use
  Company Number: JP-BAYER-2011-059426

PATIENT
  Age: 67 Year
  Sex: Male
  Weight: 72 kg

DRUGS (4)
  1. NEXAVAR [Suspect]
     Indication: HEPATIC NEOPLASM MALIGNANT
     Dosage: 200 MG, BID
     Route: 048
     Dates: start: 20110519, end: 20110917
  2. AMARYL [Concomitant]
     Dosage: DAILY DOSE 3 MG
     Route: 048
     Dates: end: 20110917
  3. DIOVAN [Concomitant]
     Dosage: DAILY DOSE 160 MG
     Route: 048
     Dates: end: 20110917
  4. ADALAT [Concomitant]
     Dosage: DAILY DOSE 10 MG
     Route: 048
     Dates: end: 20110917

REACTIONS (3)
  - HEPATIC NEOPLASM MALIGNANT [None]
  - PYREXIA [None]
  - C-REACTIVE PROTEIN INCREASED [None]
